FAERS Safety Report 8759344 (Version 2)
Quarter: 2012Q4

REPORT INFORMATION
  Report Type: 
  Country: BR (occurrence: BR)
  Receive Date: 20120829
  Receipt Date: 20120829
  Transmission Date: 20130627
  Serious: Yes (Other)
  Sender: FDA-Public Use
  Company Number: BR-009507513-2011SP055306

PATIENT

DRUGS (2)
  1. NUVARING [Suspect]
     Indication: CONTRACEPTION
     Dosage: UNK UNK, Unknown
     Route: 067
     Dates: start: 2006, end: 2009
  2. NUVARING [Suspect]
     Dosage: UNK UNK, Unknown
     Route: 067

REACTIONS (7)
  - Abortion [Recovered/Resolved]
  - Inappropriate schedule of drug administration [Unknown]
  - Caesarean section [Recovered/Resolved]
  - Complication of pregnancy [Recovered/Resolved]
  - Thrombosis [Unknown]
  - Surgery [Recovered/Resolved]
  - Drug administration error [Unknown]
